FAERS Safety Report 8194188-7 (Version None)
Quarter: 2012Q1

REPORT INFORMATION
  Report Type: 
  Country: None (occurrence: None)
  Receive Date: 20120308
  Receipt Date: 20120213
  Transmission Date: 20120608
  Serious: Yes (Other)
  Sender: FDA-Public Use
  Company Number: US-BAYER-2011-123055

PATIENT
  Age: 29 Year
  Sex: Female
  Weight: 52.154 kg

DRUGS (4)
  1. CASODEX [Concomitant]
  2. MULTI-VITAMIN [Concomitant]
     Dosage: UNK
     Dates: start: 20060101
  3. YAZ [Suspect]
     Indication: CONTRACEPTION
     Dosage: UNK
     Dates: start: 20090101, end: 20091001
  4. PROTON PUMP INHIBITORS [Concomitant]

REACTIONS (11)
  - CHOLECYSTITIS CHRONIC [None]
  - COLITIS [None]
  - MUSCULOSKELETAL PAIN [None]
  - SCAR [None]
  - ABDOMINAL PAIN UPPER [None]
  - SCAR PAIN [None]
  - FOOD ALLERGY [None]
  - CONSTIPATION [None]
  - BILIARY DYSKINESIA [None]
  - NAUSEA [None]
  - PROCEDURAL PAIN [None]
